FAERS Safety Report 13726324 (Version 1)
Quarter: 2017Q3

REPORT INFORMATION
  Report Type: Spontaneous
  Country: US (occurrence: US)
  Receive Date: 20170707
  Receipt Date: 20170707
  Transmission Date: 20171127
  Serious: Yes (Death)
  Sender: FDA-Public Use
  Company Number: US-ASTELLAS-2017US026548

PATIENT
  Age: 65 Year
  Sex: Male
  Weight: 101 kg

DRUGS (1)
  1. TARCEVA [Suspect]
     Active Substance: ERLOTINIB HYDROCHLORIDE
     Indication: LUNG NEOPLASM MALIGNANT
     Dosage: 150 MG, ONCE DAILY,ONE TABLET BY MOUTH ONE TIME DAILY ON AN EMPTY STOMACH AT LEAST 1 HOUR PRIOR OR 2
     Route: 048
     Dates: start: 20151110, end: 20170626

REACTIONS (1)
  - Death [Fatal]

NARRATIVE: CASE EVENT DATE: 20170626
